FAERS Safety Report 6707787-3 (Version None)
Quarter: 2010Q2

REPORT INFORMATION
  Report Type: 
  Country: None (occurrence: None)
  Receive Date: 20100503
  Receipt Date: 20090831
  Transmission Date: 20101027
  Serious: No
  Sender: FDA-Public Use
  Company Number: US-ASTRAZENECA-2009SE10952

PATIENT
  Sex: Male

DRUGS (2)
  1. NEXIUM [Suspect]
  2. CEREBRAL PAULSY MEDICINE [Interacting]

REACTIONS (2)
  - DRUG INTERACTION [None]
  - ILL-DEFINED DISORDER [None]
